FAERS Safety Report 18957087 (Version 1)
Quarter: 2021Q1

REPORT INFORMATION
  Report Type: Spontaneous
  Country: HU (occurrence: HU)
  Receive Date: 20210302
  Receipt Date: 20210302
  Transmission Date: 20210420
  Serious: Yes (Death, Other)
  Sender: FDA-Public Use
  Company Number: HU-SUN PHARMACEUTICAL INDUSTRIES LTD-2021R1-282747

PATIENT
  Age: 34 Year

DRUGS (1)
  1. PARACETAMOL SUN [Suspect]
     Active Substance: ACETAMINOPHEN
     Indication: LIVER DISORDER
     Dosage: UNK
     Route: 065

REACTIONS (1)
  - Death [Fatal]
